FAERS Safety Report 21017323 (Version 3)
Quarter: 2022Q4

REPORT INFORMATION
  Report Type: Spontaneous
  Country: US (occurrence: US)
  Receive Date: 20220628
  Receipt Date: 20221220
  Transmission Date: 20230113
  Serious: Yes (Hospitalization)
  Sender: FDA-Public Use
  Company Number: US-PFIZER INC-PV202200006647

PATIENT
  Age: 75 Year
  Sex: Male

DRUGS (2)
  1. METOPROLOL [Interacting]
     Active Substance: METOPROLOL
     Indication: Hypertension
     Dosage: 25 MG, DAILY
  2. DULOXETINE [Interacting]
     Active Substance: DULOXETINE
     Indication: Depression
     Dosage: 30 MG ONCE TO 3 TIMES A WEEK

REACTIONS (4)
  - Drug interaction [Unknown]
  - Haemodynamic instability [Unknown]
  - Hypertensive emergency [Unknown]
  - Cerebrovascular accident [Unknown]
